FAERS Safety Report 10922569 (Version 3)
Quarter: 2015Q3

REPORT INFORMATION
  Report Type: Spontaneous
  Country: CN (occurrence: CN)
  Receive Date: 20150317
  Receipt Date: 20150728
  Transmission Date: 20151125
  Serious: Yes (Other)
  Sender: FDA-Public Use
  Company Number: CN-BAYER-2015-008857

PATIENT
  Age: 57 Year
  Sex: Male

DRUGS (2)
  1. SALVIA OFFICINALIS LEAF [Concomitant]
     Active Substance: SAGE
     Dosage: UNK
     Dates: start: 201406, end: 201407
  2. BAYASPIRIN [Suspect]
     Active Substance: ASPIRIN
     Indication: PROPHYLAXIS
     Dosage: 25 MG/D, UNK
     Dates: start: 201406, end: 201407

REACTIONS (5)
  - Ear disorder [Not Recovered/Not Resolved]
  - Deafness unilateral [Not Recovered/Not Resolved]
  - Tinnitus [Not Recovered/Not Resolved]
  - Suspected counterfeit product [None]
  - Ear pain [Not Recovered/Not Resolved]

NARRATIVE: CASE EVENT DATE: 201507
